FAERS Safety Report 4871169-X (Version None)
Quarter: 2005Q4

REPORT INFORMATION
  Report Type: 
  Country: None (occurrence: None)
  Receive Date: 20051229
  Receipt Date: 20051213
  Transmission Date: 20060501
  Serious: Yes (Hospitalization, Other)
  Sender: FDA-Public Use
  Company Number: US200512000336

PATIENT
  Age: 75 Year
  Sex: Female
  Weight: 79.4 kg

DRUGS (13)
  1. EVISTA [Suspect]
     Indication: OSTEOPOROSIS
     Dosage: ORAL
     Route: 048
     Dates: start: 20030101, end: 20040901
  2. TENORMIN /NEZ/ (ATENOLOL) [Concomitant]
  3. LANTUS [Concomitant]
  4. WELLBUTRIN [Concomitant]
  5. PLAQUINOL (HYDROXYCHLOROQUINE SULFATE) [Concomitant]
  6. LASIX [Concomitant]
  7. HALCION /NET/ (TRIAZOLAM) [Concomitant]
  8. ASA TABS (ACETYLSALICYLIC ACID) [Concomitant]
  9. LORTAB [Concomitant]
  10. VITAMINS [Concomitant]
  11. IRON (IRON) [Concomitant]
  12. FOLIC ACID [Concomitant]
  13. BENADRYL [Concomitant]

REACTIONS (5)
  - CEREBROVASCULAR ACCIDENT [None]
  - KNEE ARTHROPLASTY [None]
  - LOSS OF CONSCIOUSNESS [None]
  - MYOCARDIAL INFARCTION [None]
  - TRANSIENT ISCHAEMIC ATTACK [None]
